FAERS Safety Report 26111524 (Version 1)
Quarter: 2025Q4

REPORT INFORMATION
  Report Type: Report from Study
  Country: US (occurrence: US)
  Receive Date: 20251202
  Receipt Date: 20251202
  Transmission Date: 20260118
  Serious: Yes (Life-Threatening, Hospitalization, Other)
  Sender: CSL BEHRING
  Company Number: US-BEH-2025219601

PATIENT
  Age: 63 Year
  Sex: Female
  Weight: 170.52 kg

DRUGS (8)
  1. BERINERT [Suspect]
     Active Substance: HUMAN C1-ESTERASE INHIBITOR
     Indication: Hereditary angioedema
     Dosage: 9000 IU/KG, BIW
     Route: 058
  2. BERINERT [Suspect]
     Active Substance: HUMAN C1-ESTERASE INHIBITOR
     Indication: Prophylaxis
     Dosage: 9700 IU/KG, BIW
     Route: 058
  3. BERINERT [Suspect]
     Active Substance: HUMAN C1-ESTERASE INHIBITOR
     Dosage: 10000 IU/KG, BIW
     Route: 058
  4. BERINERT [Suspect]
     Active Substance: HUMAN C1-ESTERASE INHIBITOR
     Dosage: 10000 IU/KG, BIW
     Route: 065
  5. BERINERT [Suspect]
     Active Substance: HUMAN C1-ESTERASE INHIBITOR
     Indication: Prophylaxis
     Dosage: 10000 IU/KG, BIW
     Route: 065
  6. BERINERT [Suspect]
     Active Substance: HUMAN C1-ESTERASE INHIBITOR
     Indication: Hereditary angioedema
     Dosage: 10000 IU/KG, TIW
     Route: 058
  7. BERINERT [Suspect]
     Active Substance: HUMAN C1-ESTERASE INHIBITOR
     Dosage: 10000 IU/KG, BIW
     Route: 058
  8. MORPHINE [Concomitant]
     Active Substance: MORPHINE

REACTIONS (14)
  - Ankle fracture [Not Recovered/Not Resolved]
  - Fall [Unknown]
  - Hospitalisation [Unknown]
  - Malaise [Unknown]
  - Stress [Unknown]
  - Ill-defined disorder [Unknown]
  - Ill-defined disorder [Unknown]
  - Mobility decreased [Unknown]
  - Wheelchair user [Recovering/Resolving]
  - Fracture [Recovering/Resolving]
  - Fall [Recovering/Resolving]
  - Bedridden [Recovering/Resolving]
  - Feeling hot [Not Recovered/Not Resolved]
  - Ill-defined disorder [Unknown]

NARRATIVE: CASE EVENT DATE: 20241001
